FAERS Safety Report 7490813-4 (Version None)
Quarter: 2011Q2

REPORT INFORMATION
  Report Type: 
  Country: None (occurrence: None)
  Receive Date: 20110519
  Receipt Date: 20110510
  Transmission Date: 20111010
  Serious: Yes (Hospitalization, Other)
  Sender: FDA-Public Use
  Company Number: BR-NOVOPROD-326793

PATIENT
  Age: 36 Year
  Sex: Male
  Weight: 49 kg

DRUGS (4)
  1. LEVEMIR [Concomitant]
     Dosage: UNK
  2. NOVORAPID FLEXPEN [Suspect]
     Indication: TYPE 2 DIABETES MELLITUS
     Dosage: UNK
     Route: 058
  3. CLONAZEPAM [Concomitant]
     Indication: ANTIDEPRESSANT THERAPY
  4. CLONAZEPAM [Concomitant]
     Indication: SEDATION
     Dosage: 2 MG, QD
     Route: 048

REACTIONS (7)
  - INSOMNIA [None]
  - BLOOD GLUCOSE INCREASED [None]
  - MENINGITIS MENINGOCOCCAL [None]
  - HYPOGLYCAEMIA [None]
  - DEPRESSION [None]
  - VISION BLURRED [None]
  - DRUG INEFFECTIVE [None]
